FAERS Safety Report 15088278 (Version 1)
Quarter: 2018Q2

REPORT INFORMATION
  Report Type: Report from Study
  Country: DE (occurrence: DE)
  Receive Date: 20180629
  Receipt Date: 20180629
  Transmission Date: 20180711
  Serious: Yes (Other)
  Sender: FDA-Public Use
  Company Number: DE-BAXTER-2018BAX017981

PATIENT
  Age: 2 Month

DRUGS (5)
  1. CYTOSINE ARABINOSIDE [Suspect]
     Active Substance: CYTARABINE
     Indication: ATYPICAL TERATOID/RHABDOID TUMOUR OF CNS
     Dosage: RHAB 2007 REGIMEN
     Route: 065
  2. METHOTREXATE. [Suspect]
     Active Substance: METHOTREXATE
     Indication: ATYPICAL TERATOID/RHABDOID TUMOUR OF CNS
     Dosage: 18 MILLIGRAM, ADDITIONAL INFO: ROUTE: {INTRAVANTRICULAR}; MEDICATION ERROR
     Route: 050
  3. VINCRISTINE [Suspect]
     Active Substance: VINCRISTINE
     Indication: ATYPICAL TERATOID/RHABDOID TUMOUR OF CNS
     Dosage: 0.22 MILLIGRAM, RHAB 2007 REGIMEN
     Route: 065
  4. ENDOXAN 1G [Suspect]
     Active Substance: CYCLOPHOSPHAMIDE
     Indication: ATYPICAL TERATOID/RHABDOID TUMOUR OF CNS
     Dosage: 276 MILLIGRAM, RHAB 2007 REGIMEN
     Route: 065
  5. DOXORUBICIN [Suspect]
     Active Substance: DOXORUBICIN
     Indication: ATYPICAL TERATOID/RHABDOID TUMOUR OF CNS
     Dosage: RHAB 2007 REGIMEN
     Route: 065

REACTIONS (2)
  - Encephalomalacia [Unknown]
  - Accidental exposure to product [Unknown]
